FAERS Safety Report 6267677-X (Version None)
Quarter: 2009Q3

REPORT INFORMATION
  Report Type: 
  Country: None (occurrence: None)
  Receive Date: 20090710
  Receipt Date: 20090629
  Transmission Date: 20100115
  Serious: Yes (Other)
  Sender: FDA-Public Use
  Company Number: 230222K09GBR

PATIENT
  Sex: Female

DRUGS (1)
  1. REBIF [Suspect]
     Dosage: 22
     Dates: start: 20090501

REACTIONS (3)
  - BALANCE DISORDER [None]
  - INJECTION SITE ERYTHEMA [None]
  - OPTIC NEURITIS [None]
